FAERS Safety Report 8795972 (Version 1)
Quarter: 2012Q4

REPORT INFORMATION
  Report Type: 
  Country: CA (occurrence: CA)
  Receive Date: 20120920
  Receipt Date: 20120920
  Transmission Date: 20130627
  Serious: Yes (Hospitalization)
  Sender: FDA-Public Use
  Company Number: CA-ASTRAZENECA-2012SE71239

PATIENT
  Age: 82 Year
  Sex: Male
  Weight: 97 kg

DRUGS (8)
  1. ZOLADEX [Suspect]
     Route: 058
  2. FISH OIL [Suspect]
     Route: 048
  3. NAPROXEN [Suspect]
     Route: 048
  4. FINASTERIDE [Concomitant]
  5. MULTIVITAMINES [Concomitant]
  6. SIMVASTATIN [Concomitant]
     Route: 059
  7. TYLENOL WITH CODEINE [Concomitant]
  8. VITALUX [Concomitant]

REACTIONS (4)
  - Abdominal distension [Not Recovered/Not Resolved]
  - Contusion [Not Recovered/Not Resolved]
  - Haemoglobin decreased [Not Recovered/Not Resolved]
  - Pneumonia [Not Recovered/Not Resolved]
